FAERS Safety Report 18790107 (Version 1)
Quarter: 2021Q1

REPORT INFORMATION
  Report Type: Spontaneous
  Country: CH (occurrence: IN)
  Receive Date: 20210126
  Receipt Date: 20210126
  Transmission Date: 20210419
  Serious: Yes (Death, Other)
  Sender: FDA-Public Use
  Company Number: IN-ASTELLAS-2021US002692

PATIENT
  Age: 65 Year

DRUGS (1)
  1. CRESEMBA [Suspect]
     Active Substance: ISAVUCONAZONIUM SULFATE
     Indication: PRODUCT USED FOR UNKNOWN INDICATION
     Dosage: UNK UNK, UNKNOWN FREQ.
     Route: 065

REACTIONS (8)
  - Blood cholesterol increased [Unknown]
  - Pseudomonas infection [Unknown]
  - Pyrexia [Unknown]
  - Myalgia [Unknown]
  - Diarrhoea [Unknown]
  - Death [Fatal]
  - Hypoxia [Unknown]
  - Condition aggravated [Unknown]
